FAERS Safety Report 15625171 (Version 2)
Quarter: 2018Q4

REPORT INFORMATION
  Report Type: Report from Study
  Country: CA (occurrence: CA)
  Receive Date: 20181116
  Receipt Date: 20181213
  Transmission Date: 20190205
  Serious: Yes (Death)
  Sender: FDA-Public Use
  Company Number: CA-TOLMAR, INC.-2018CA011315

PATIENT

DRUGS (1)
  1. ELIGARD [Suspect]
     Active Substance: LEUPROLIDE ACETATE
     Indication: PROSTATE CANCER
     Dosage: 22.5 MG, 3 MONTHS
     Route: 058
     Dates: start: 20170712, end: 20181107

REACTIONS (3)
  - Metastatic neoplasm [Fatal]
  - Prostate cancer [Fatal]
  - Cerebrovascular accident [Fatal]
